FAERS Safety Report 9910801 (Version 4)
Quarter: 2014Q2

REPORT INFORMATION
  Report Type: Report from Study
  Country: IT (occurrence: IT)
  Receive Date: 20140219
  Receipt Date: 20140408
  Transmission Date: 20141212
  Serious: Yes (Hospitalization)
  Sender: FDA-Public Use
  Company Number: IT-ELI_LILLY_AND_COMPANY-IT201312007458

PATIENT
  Age: 78 Year
  Sex: Male
  Weight: 74 kg

DRUGS (9)
  1. PLACEBO [Suspect]
     Indication: PANCREATIC CARCINOMA
     Dosage: UNK, OTHER
     Route: 048
     Dates: start: 20131030
  2. GEMCITABINE HYDROCHLORIDE [Suspect]
     Indication: PANCREATIC CARCINOMA
     Dosage: 1000 MG/M2, OTHER
     Route: 042
     Dates: start: 20131105
  3. GEMCITABINE HYDROCHLORIDE [Suspect]
     Dosage: UNK, OTHER
     Route: 042
     Dates: start: 20131210
  4. DUROGESIC [Concomitant]
     Indication: PAIN
     Dosage: UNK
     Dates: start: 20131210
  5. DURAMORPH [Concomitant]
     Indication: PAIN
     Dosage: UNK
     Dates: start: 20131012
  6. PLASIL [Concomitant]
     Indication: NAUSEA
     Dosage: UNK
     Dates: start: 20131101
  7. LANSOPRAZOLE [Concomitant]
     Indication: PROPHYLAXIS AGAINST GASTROINTESTINAL ULCER
     Dosage: UNK
     Dates: start: 201308
  8. INSULIN RAPID [Concomitant]
     Indication: DIABETES MELLITUS
     Dosage: UNK
     Dates: start: 201308
  9. LANTUS [Concomitant]
     Indication: DIABETES MELLITUS
     Dosage: UNK
     Dates: start: 201308

REACTIONS (3)
  - Abdominal pain [Recovered/Resolved]
  - Subileus [Recovered/Resolved]
  - Oesophagitis [Unknown]
